FAERS Safety Report 16312573 (Version 1)
Quarter: 2019Q2

REPORT INFORMATION
  Report Type: Spontaneous
  Country: IT (occurrence: IT)
  Receive Date: 20190515
  Receipt Date: 20190515
  Transmission Date: 20190711
  Serious: Yes (Other)
  Sender: FDA-Public Use
  Company Number: IT-AUROBINDO-AUR-APL-2019-022427

PATIENT

DRUGS (2)
  1. ALENDRONIC ACID [Suspect]
     Active Substance: ALENDRONIC ACID
     Indication: OSTEOPOROSIS
     Dosage: 1 DOSAGE FORM, EVERY WEEK
     Route: 048
     Dates: start: 20110101, end: 20180101
  2. CLODRONATE DISODIUM [Interacting]
     Active Substance: CLODRONATE DISODIUM
     Indication: OSTEOPOROSIS
     Dosage: 1 DOSAGE FORM, EVERY WEEK
     Route: 030
     Dates: start: 20030101, end: 20110101

REACTIONS (2)
  - Osteonecrosis of jaw [Not Recovered/Not Resolved]
  - Drug interaction [Not Recovered/Not Resolved]

NARRATIVE: CASE EVENT DATE: 20180929
